FAERS Safety Report 5518572-2 (Version None)
Quarter: 2007Q4

REPORT INFORMATION
  Report Type: 
  Country: None (occurrence: None)
  Receive Date: 20071115
  Receipt Date: 20071103
  Transmission Date: 20080405
  Serious: Yes (Other)
  Sender: FDA-Public Use
  Company Number: US-PFIZER INC-2007093639

PATIENT
  Sex: Male
  Weight: 215 kg

DRUGS (3)
  1. CHANTIX [Suspect]
     Indication: SMOKING CESSATION THERAPY
     Dates: start: 20070801, end: 20071001
  2. ZOLOFT [Suspect]
     Indication: PANIC DISORDER
     Dosage: TEXT:25 MG DAILY EVERY DAY TDD:25 MG
  3. EFFEXOR [Suspect]
     Indication: PANIC DISORDER
     Dosage: TEXT:75 MG
     Dates: start: 20071017, end: 20071017

REACTIONS (11)
  - ADVERSE EVENT [None]
  - ANXIETY [None]
  - DECREASED APPETITE [None]
  - DIARRHOEA [None]
  - DISSOCIATION [None]
  - FEELING HOT [None]
  - HYPERHIDROSIS [None]
  - ILL-DEFINED DISORDER [None]
  - PANIC DISORDER [None]
  - PARANOIA [None]
  - SLEEP DISORDER [None]
